FAERS Safety Report 11910049 (Version 2)
Quarter: 2016Q1

REPORT INFORMATION
  Report Type: Spontaneous
  Country: CA (occurrence: CA)
  Receive Date: 20160112
  Receipt Date: 20160115
  Transmission Date: 20160526
  Serious: Yes (Disabling)
  Sender: FDA-Public Use
  Company Number: CA-ROCHE-1692043

PATIENT
  Sex: Male
  Weight: 108.3 kg

DRUGS (38)
  1. AVASTIN [Suspect]
     Active Substance: BEVACIZUMAB
     Dosage: GIVEN OVER 10 MINUTES
     Route: 042
     Dates: start: 20140820
  2. FLUOROURACIL. [Concomitant]
     Active Substance: FLUOROURACIL
     Route: 042
     Dates: start: 20140820
  3. LEUCOVORIN. [Concomitant]
     Active Substance: LEUCOVORIN
     Route: 042
     Dates: start: 20140820
  4. NOVORAPID [Concomitant]
     Active Substance: INSULIN ASPART
     Dosage: MORNING
     Route: 065
  5. FLAMAZINE [Concomitant]
     Active Substance: SILVER SULFADIAZINE
     Dosage: POST ACHILLES SURGERY, ONCE IN 2-3 DAYS
     Route: 061
  6. AVASTIN [Suspect]
     Active Substance: BEVACIZUMAB
     Route: 042
     Dates: start: 20151118
  7. FLUOROURACIL. [Concomitant]
     Active Substance: FLUOROURACIL
     Route: 042
     Dates: start: 20140806
  8. FLUOROURACIL. [Concomitant]
     Active Substance: FLUOROURACIL
     Dosage: OVER 48 HOURS VIA ISOMETRIC INFUSION PUMP
     Route: 042
     Dates: start: 20151202
  9. LEUCOVORIN. [Concomitant]
     Active Substance: LEUCOVORIN
     Dosage: INFUSED OVER 30 MINUTES
     Route: 042
     Dates: start: 20151202
  10. IRINOTECAN [Concomitant]
     Active Substance: IRINOTECAN
     Dosage: INFUSED IN 90MINUTE INFUSION
     Route: 042
     Dates: start: 20151202
  11. ONDANSETRON [Concomitant]
     Active Substance: ONDANSETRON
     Dosage: POST CHEMO
     Route: 048
  12. LEVEMIR [Concomitant]
     Active Substance: INSULIN DETEMIR
     Dosage: MORNING
     Route: 065
  13. CLOTRIMADERM [Concomitant]
     Dosage: AS REQUIRED
     Route: 065
  14. LEUCOVORIN. [Concomitant]
     Active Substance: LEUCOVORIN
     Route: 042
     Dates: start: 20140806
  15. IRINOTECAN [Concomitant]
     Active Substance: IRINOTECAN
     Route: 042
     Dates: start: 20140806
  16. RAMIPRIL HCT [Concomitant]
     Active Substance: HYDROCHLOROTHIAZIDE\RAMIPRIL
     Dosage: MORNING 10-12.5MG
     Route: 048
  17. ROSUVASTATIN [Concomitant]
     Active Substance: ROSUVASTATIN
     Route: 048
  18. HYDROVAL CREAM [Concomitant]
     Dosage: AS REQUIRED
     Route: 061
  19. FLUOROURACIL. [Concomitant]
     Active Substance: FLUOROURACIL
     Dosage: OVER 48 HOURS VIA ISOMETRIC INFUSION PUMP
     Route: 042
     Dates: start: 20151104
  20. FLUOROURACIL. [Concomitant]
     Active Substance: FLUOROURACIL
     Dosage: OVER 48 HOURS VIA ISOMETRIC INFUSION PUMP
     Route: 042
     Dates: start: 20151118
  21. IRINOTECAN [Concomitant]
     Active Substance: IRINOTECAN
     Route: 042
     Dates: start: 20140820
  22. IRINOTECAN [Concomitant]
     Active Substance: IRINOTECAN
     Dosage: INFUSED IN 90MINUTE INFUSION
     Route: 042
     Dates: start: 20151104
  23. IRINOTECAN [Concomitant]
     Active Substance: IRINOTECAN
     Dosage: INFUSED IN 90MINUTE INFUSION
     Route: 042
     Dates: start: 20151118
  24. NOVORAPID [Concomitant]
     Active Substance: INSULIN ASPART
     Dosage: DINNER
     Route: 065
  25. PANTOLOC [Concomitant]
     Active Substance: PANTOPRAZOLE SODIUM
     Dosage: AS REQUIRED - TAKEN FROM A BOTTLE
     Route: 048
  26. AVASTIN [Suspect]
     Active Substance: BEVACIZUMAB
     Indication: COLON CANCER METASTATIC
     Dosage: GIVEN OVER 10 MINUTES
     Route: 042
     Dates: start: 20140806, end: 20151218
  27. AVASTIN [Suspect]
     Active Substance: BEVACIZUMAB
     Route: 042
     Dates: start: 20151202, end: 20151218
  28. LEVEMIR [Concomitant]
     Active Substance: INSULIN DETEMIR
     Dosage: BEFORE SUPPER
     Route: 065
  29. NOVORAPID [Concomitant]
     Active Substance: INSULIN ASPART
     Dosage: LUNCH
     Route: 065
  30. AVASTIN [Suspect]
     Active Substance: BEVACIZUMAB
     Route: 042
     Dates: start: 20151104
  31. LEUCOVORIN. [Concomitant]
     Active Substance: LEUCOVORIN
     Dosage: INFUSED OVER 30 MINUTES
     Route: 042
     Dates: start: 20151104
  32. LEUCOVORIN. [Concomitant]
     Active Substance: LEUCOVORIN
     Dosage: INFUSED OVER 30 MINUTES
     Route: 042
     Dates: start: 20151118
  33. ATIVAN [Concomitant]
     Active Substance: LORAZEPAM
     Dosage: BEFORE BED - ONLY TOOK FOR ONE EXAM
     Route: 048
  34. ATROPIN [Concomitant]
     Active Substance: ATROPINE
     Route: 042
  35. JANUMET [Concomitant]
     Active Substance: METFORMIN HYDROCHLORIDE\SITAGLIPTIN PHOSPHATE
     Dosage: 50-1000 MG
     Route: 048
  36. STEMETIL [Concomitant]
     Active Substance: PROCHLORPERAZINE MALEATE
     Dosage: AS REQUIRED - TOOK 3-4 PILLS IN THE LAST MONTH
     Route: 048
  37. BISOPROLOL [Concomitant]
     Active Substance: BISOPROLOL
     Dosage: 1 PILL IN THE MORNING
     Route: 048
  38. NU-GEL DRESSINGS [Concomitant]
     Dosage: TAKEN POST-ACHILLES SURGERY, 1 IN 2-3 DAYS
     Route: 065

REACTIONS (1)
  - Tendon rupture [Unknown]
